FAERS Safety Report 5547941-X (Version None)
Quarter: 2007Q4

REPORT INFORMATION
  Report Type: 
  Country: None (occurrence: None)
  Receive Date: 20071128
  Receipt Date: 20070405
  Transmission Date: 20080405
  Serious: Yes (Other)
  Sender: FDA-Public Use
  Company Number: 2007026526

PATIENT
  Sex: Male

DRUGS (2)
  1. LIPITOR [Suspect]
     Indication: BLOOD CHOLESTEROL INCREASED
     Dates: end: 20070312
  2. TRIPTORELIN (TRIPTORELIN) [Suspect]
     Indication: PROSTATE CANCER
     Dosage: 11.25 MG, INTRAMUSCULAR
     Route: 030
     Dates: start: 20070213

REACTIONS (1)
  - RHABDOMYOLYSIS [None]
